FAERS Safety Report 15750034 (Version 1)
Quarter: 2018Q4

REPORT INFORMATION
  Report Type: Report from Study
  Country: US (occurrence: US)
  Receive Date: 20181221
  Receipt Date: 20181221
  Transmission Date: 20190205
  Serious: Yes (Other)
  Sender: FDA-Public Use
  Company Number: US-JNJFOC-20181214996

PATIENT
  Age: 71 Year
  Sex: Female

DRUGS (1)
  1. IMBRUVICA [Suspect]
     Active Substance: IBRUTINIB
     Indication: MANTLE CELL LYMPHOMA
     Dosage: 280 MG, QD
     Route: 048
     Dates: start: 20181016

REACTIONS (8)
  - Incorrect dose administered [Unknown]
  - Psychiatric symptom [Unknown]
  - Feeling abnormal [Unknown]
  - Abdominal mass [Unknown]
  - Pain [Unknown]
  - Off label use [Unknown]
  - Lung disorder [Unknown]
  - Asthenia [Unknown]

NARRATIVE: CASE EVENT DATE: 20181016
